FAERS Safety Report 7033894-4 (Version None)
Quarter: 2010Q4

REPORT INFORMATION
  Report Type: 
  Country: None (occurrence: None)
  Receive Date: 20101007
  Receipt Date: 20101004
  Transmission Date: 20110411
  Serious: Yes (Hospitalization, Other)
  Sender: FDA-Public Use
  Company Number: US-AMGEN-KDL443179

PATIENT
  Sex: Female

DRUGS (1)
  1. ENBREL [Suspect]
     Indication: RHEUMATOID ARTHRITIS
     Route: 058
     Dates: start: 20091001

REACTIONS (8)
  - AMNESIA [None]
  - ARTERIAL DISORDER [None]
  - CONTUSION [None]
  - CORONARY ARTERY DISEASE [None]
  - FALL [None]
  - INCREASED TENDENCY TO BRUISE [None]
  - MUSCLE SPASMS [None]
  - RHEUMATOID ARTHRITIS [None]
